FAERS Safety Report 7309091-1 (Version None)
Quarter: 2011Q1

REPORT INFORMATION
  Report Type: 
  Country: None (occurrence: None)
  Receive Date: 20110223
  Receipt Date: 20110208
  Transmission Date: 20110831
  Serious: Yes (Other)
  Sender: FDA-Public Use
  Company Number: JP-CTI_01295_2011

PATIENT
  Sex: Male

DRUGS (4)
  1. MEIACT MS - CEFDITOREN PIVOXIL [Suspect]
     Indication: PNEUMONIA
     Route: 048
     Dates: start: 20101220, end: 20101223
  2. NATURAL ALUMINUM SILICATE [Concomitant]
     Route: 048
     Dates: start: 20101220
  3. ROCEPHIN [Suspect]
     Indication: PNEUMONIA
     Route: 041
     Dates: start: 20101216, end: 20101220
  4. ANTIBIOTICS-RESISTANT LACTIC ACID BACTERIAE [Concomitant]
     Indication: PRODUCT USED FOR UNKNOWN INDICATION
     Route: 048
     Dates: start: 20101220

REACTIONS (4)
  - DIARRHOEA [None]
  - CLOSTRIDIUM TEST POSITIVE [None]
  - PYREXIA [None]
  - PSEUDOMEMBRANOUS COLITIS [None]
